FAERS Safety Report 18281813 (Version 1)
Quarter: 2020Q3

REPORT INFORMATION
  Report Type: Spontaneous
  Country: GB (occurrence: GB)
  Receive Date: 20200918
  Receipt Date: 20200918
  Transmission Date: 20201103
  Serious: Yes (Other)
  Sender: FDA-Public Use
  Company Number: GB-009507513-2009GBR005481

PATIENT
  Age: 59 Year
  Sex: Male

DRUGS (10)
  1. KEYTRUDA [Suspect]
     Active Substance: PEMBROLIZUMAB
     Indication: METASTASES TO NECK
  2. KEYTRUDA [Suspect]
     Active Substance: PEMBROLIZUMAB
     Indication: BRAIN NEOPLASM
  3. INLYTA [Suspect]
     Active Substance: AXITINIB
     Indication: METASTASES TO ABDOMINAL WALL
  4. INLYTA [Suspect]
     Active Substance: AXITINIB
     Indication: METASTASES TO CHEST WALL
  5. KEYTRUDA [Suspect]
     Active Substance: PEMBROLIZUMAB
     Indication: METASTASES TO ABDOMINAL WALL
     Dosage: UNK, EVERY 6 WEEKS
     Route: 042
     Dates: start: 202005
  6. INLYTA [Suspect]
     Active Substance: AXITINIB
     Indication: BRAIN NEOPLASM
  7. KEYTRUDA [Suspect]
     Active Substance: PEMBROLIZUMAB
     Indication: METASTASES TO CHEST WALL
  8. INLYTA [Suspect]
     Active Substance: AXITINIB
     Indication: CHROMOPHOBE RENAL CELL CARCINOMA
     Dosage: PILL TWICE A DAY
  9. KEYTRUDA [Suspect]
     Active Substance: PEMBROLIZUMAB
     Indication: CHROMOPHOBE RENAL CELL CARCINOMA
     Dosage: UNK
  10. INLYTA [Suspect]
     Active Substance: AXITINIB
     Indication: METASTASES TO NECK

REACTIONS (2)
  - Off label use [Unknown]
  - Brain neoplasm [Recovering/Resolving]

NARRATIVE: CASE EVENT DATE: 202004
